FAERS Safety Report 9403319 (Version 2)
Quarter: 2013Q3

REPORT INFORMATION
  Report Type: Spontaneous
  Country: BR (occurrence: BR)
  Receive Date: 20130716
  Receipt Date: 20130805
  Transmission Date: 20140515
  Serious: Yes (Other)
  Sender: FDA-Public Use
  Company Number: ALCN2013BR000464

PATIENT
  Sex: Female

DRUGS (3)
  1. TRAVATAN BAC-FREE [Suspect]
     Indication: GLAUCOMA
     Dosage: 1 GTT, BID
     Dates: start: 2009
  2. TRAVATAN BAC-FREE [Suspect]
     Dosage: UNK
     Route: 047
     Dates: start: 2009
  3. AZOPT [Suspect]
     Indication: GLAUCOMA
     Dosage: UNK
     Route: 047
     Dates: start: 2009

REACTIONS (4)
  - Cerebrovascular accident [Unknown]
  - Cerebral palsy [Unknown]
  - Paralysis [Unknown]
  - Cardiomyopathy [Unknown]
